APPROVED DRUG PRODUCT: CLINIMIX 2.75/5 SULFITE FREE IN DEXTROSE 5% IN PLASTIC CONTAINER
Active Ingredient: AMINO ACIDS; DEXTROSE
Strength: 2.75%;5GM/100ML
Dosage Form/Route: INJECTABLE;INJECTION
Application: N020734 | Product #001
Applicant: BAXTER HEALTHCARE CORP
Approved: Sep 29, 1997 | RLD: No | RS: No | Type: RX